FAERS Safety Report 4476117-2 (Version None)
Quarter: 2004Q3

REPORT INFORMATION
  Report Type: 
  Country: None (occurrence: None)
  Receive Date: 20040923
  Receipt Date: 20040810
  Transmission Date: 20050211
  Serious: No
  Sender: FDA-Public Use
  Company Number: USA040670722

PATIENT
  Age: 66 Year
  Sex: Female
  Weight: 73 kg

DRUGS (9)
  1. FORTEO [Suspect]
     Indication: OSTEOPOROSIS
     Dosage: 20 UG/1 DAY
     Dates: start: 20030901
  2. NEURONTIN [Concomitant]
  3. PLAQUENIL [Concomitant]
  4. BEXTRA [Concomitant]
  5. CELEXA [Concomitant]
  6. AMBIEN [Concomitant]
  7. NEXIUM [Concomitant]
  8. TRAMADOL HCL [Concomitant]
  9. TRAZODONE HCL [Concomitant]

REACTIONS (1)
  - CONTUSION [None]
